FAERS Safety Report 9299900 (Version 1)
Quarter: 2013Q1

REPORT INFORMATION
  Report Type: Spontaneous
  Country: US (occurrence: None)
  Receive Date: 20130107
  Receipt Date: 20130107
  Transmission Date: 20140127
  Serious: Yes (Other)
  Sender: FDA-Public Use
  Company Number: PHEH2012US018641

PATIENT
  Age: 37 Year
  Sex: Female
  Weight: 148.8 kg

DRUGS (29)
  1. GILENYA [Suspect]
     Route: 048
     Dates: start: 201105
  2. VICODIN (HYDROCODINE BITARTRATE, PARACETAMAOL) [Concomitant]
  3. VALSARTAN (VALSARTAN) [Concomitant]
  4. OMEPRAZOLE (OMEPRAZOLE) [Concomitant]
  5. PROAIR (FLUTICASONEPROPIONATE) (FLUTICASONE PROPRIONATE) [Concomitant]
  6. PROMETHAZINE (PROMETHAZINE) [Concomitant]
  7. METOPROLOL (METOPROLOL) [Concomitant]
  8. HYDROCODONE W/ACETAMINOPHNE (HYDROCODONE BITARTRATE, PARACETAMOL) [Concomitant]
  9. ZOLOFT (SERTALINE HYDROCHLORIDE) [Concomitant]
  10. LOSARTAN (LOSARTAN) [Concomitant]
  11. ADVAIR (FLUTICASONE PROPIONATE, SALMETEROL XINAFOATE) [Concomitant]
  12. IPRATROPIUM BROMIDE W/SALBUTAMOL (IPRATROPIUM BROMIDE, SALBUTAMOL) [Concomitant]
  13. DOC-Q-LACE (DOCUSATE SODIUM) [Concomitant]
  14. DIAZEPAM (DIAZEPAM) [Concomitant]
  15. ORPHENADRINE (ORPHENADRINE) [Concomitant]
  16. SYNTHROID (LEVOTHYROXINE SODIUM) [Concomitant]
  17. CALCIUM-VITAMIN D-VITAMIN K [Concomitant]
  18. VITAMIN D (ERGOCALCIFEROL) [Concomitant]
  19. BENTYL (DICYCLOVERINE HYROCHLORIDE) [Concomitant]
  20. ULTRAM (TRAMADOL HYDROCHLORIDE) [Concomitant]
  21. SINGULAIR [Concomitant]
  22. LEVOTHYROXINE (LEVOTHYROXINE) [Concomitant]
  23. FENTANYL (FENTANYL) [Concomitant]
  24. AMLODIPINE (AMLODIPINE) [Concomitant]
  25. MACRODANTIN [Concomitant]
  26. MACROBID (NITROFURANTOIN) [Concomitant]
  27. PYRIDIUM (PHENAZOPYRIDINE HYDROCHLORIDE) [Concomitant]
  28. POTASSIUM (POTASSIUM) [Concomitant]
  29. COPAXONE (GLATIRAMER ACETATE) [Concomitant]

REACTIONS (23)
  - Pneumonia [None]
  - Abscess [None]
  - Ear lobe infection [None]
  - Infection [None]
  - Malaise [None]
  - Pain in extremity [None]
  - Dysaesthesia [None]
  - Impetigo [None]
  - Insomnia [None]
  - Snoring [None]
  - Oedema peripheral [None]
  - Gait disturbance [None]
  - Hypoaesthesia [None]
  - Fall [None]
  - Memory impairment [None]
  - Bladder disorder [None]
  - Muscle spasms [None]
  - Dysphagia [None]
  - Fatigue [None]
  - Complex regional pain syndrome [None]
  - Bronchitis [None]
  - Blood pressure increased [None]
  - Vision blurred [None]
